FAERS Safety Report 6771366-2 (Version None)
Quarter: 2010Q2

REPORT INFORMATION
  Report Type: 
  Country: None (occurrence: None)
  Receive Date: 20100520
  Receipt Date: 20090310
  Transmission Date: 20101027
  Serious: Yes (Other)
  Sender: FDA-Public Use
  Company Number: 2009181423

PATIENT
  Age: 51 Year
  Sex: Female
  Weight: 61 kg

DRUGS (2)
  1. PROVERA [Suspect]
     Indication: MENOPAUSE
     Dates: start: 19870101, end: 19980101
  2. PREMARIN [Suspect]
     Indication: MENOPAUSE
     Dates: start: 19870101, end: 19980101

REACTIONS (1)
  - BREAST CANCER FEMALE [None]
